FAERS Safety Report 12865897 (Version 1)
Quarter: 2016Q4

REPORT INFORMATION
  Report Type: Spontaneous
  Country: CA (occurrence: CA)
  Receive Date: 20161020
  Receipt Date: 20161020
  Transmission Date: 20170207
  Serious: Yes (Death, Life-Threatening, Hospitalization)
  Sender: FDA-Public Use
  Company Number: CA-JNJFOC-20161016942

PATIENT
  Age: 76 Year
  Sex: Female

DRUGS (1)
  1. XARELTO [Suspect]
     Active Substance: RIVAROXABAN
     Indication: ATRIAL FIBRILLATION
     Route: 048

REACTIONS (7)
  - Blood pressure systolic decreased [Fatal]
  - International normalised ratio increased [Fatal]
  - Sepsis [Fatal]
  - Glomerular filtration rate decreased [Fatal]
  - Intestinal ischaemia [Fatal]
  - Large intestinal haemorrhage [Fatal]
  - General physical health deterioration [Fatal]
